FAERS Safety Report 12326664 (Version 1)
Quarter: 2016Q2

REPORT INFORMATION
  Report Type: Spontaneous
  Country: US (occurrence: None)
  Receive Date: 20160502
  Receipt Date: 20160502
  Transmission Date: 20160815
  Serious: Yes (Other)
  Sender: FDA-Public Use
  Company Number: None

PATIENT
  Age: 82 Year
  Sex: Male
  Weight: 108.41 kg

DRUGS (9)
  1. DOXAZOSIN [Suspect]
     Active Substance: DOXAZOSIN\DOXAZOSIN MESYLATE
     Route: 048
  2. VITAMIN D [Concomitant]
     Active Substance: CHOLECALCIFEROL
  3. LIPITOR [Concomitant]
     Active Substance: ATORVASTATIN CALCIUM
  4. METOPROLOL SUCCINATE. [Concomitant]
     Active Substance: METOPROLOL SUCCINATE
  5. FENOFIBRATE. [Concomitant]
     Active Substance: FENOFIBRATE
  6. METFROME HCL [Concomitant]
  7. LISINOPRIL-HYDROCHLOROTHIAZIDE [Concomitant]
     Active Substance: HYDROCHLOROTHIAZIDE\LISINOPRIL
  8. ONE TOUCH ULTRA BLUE STRIP [Concomitant]
  9. AMLODIPINE [Concomitant]
     Active Substance: AMLODIPINE BESYLATE

REACTIONS (1)
  - Blood urine present [None]

NARRATIVE: CASE EVENT DATE: 20071005
